FAERS Safety Report 11420205 (Version 2)
Quarter: 2015Q3

REPORT INFORMATION
  Report Type: Spontaneous
  Country: US (occurrence: US)
  Receive Date: 20150826
  Receipt Date: 20150928
  Transmission Date: 20151125
  Serious: No
  Sender: FDA-Public Use
  Company Number: US-ACTELION PHARMACEUTICALS US, INC.-A-NJ2015-119739

PATIENT
  Age: 93 Year
  Sex: Male

DRUGS (9)
  1. LORAZEPAM. [Concomitant]
     Active Substance: LORAZEPAM
  2. PHOS-NAK [Concomitant]
  3. VALCHLOR [Suspect]
     Active Substance: MECHLORETHAMINE
     Dosage: UNK UNK, QOD
     Route: 061
  4. BESIVANCE [Concomitant]
     Active Substance: BESIFLOXACIN
  5. DUREZOL [Concomitant]
     Active Substance: DIFLUPREDNATE
  6. TAMSULOSIN HCL [Concomitant]
     Active Substance: TAMSULOSIN
  7. VALCHLOR [Suspect]
     Active Substance: MECHLORETHAMINE
     Indication: MYCOSIS FUNGOIDES
     Dosage: UNK UNK, QD
     Route: 061
     Dates: start: 20150512
  8. ALLOPURINOL. [Concomitant]
     Active Substance: ALLOPURINOL
  9. BROMFENAC [Concomitant]
     Active Substance: BROMFENAC SODIUM

REACTIONS (4)
  - Application site vesicles [Recovering/Resolving]
  - Dry skin [Recovering/Resolving]
  - Application site erythema [Recovering/Resolving]
  - Application site irritation [Recovering/Resolving]
